FAERS Safety Report 5808828-8 (Version None)
Quarter: 2008Q3

REPORT INFORMATION
  Report Type: 
  Country: None (occurrence: None)
  Receive Date: 20080714
  Receipt Date: 20080709
  Transmission Date: 20090109
  Serious: Yes (Other)
  Sender: FDA-Public Use
  Company Number: B0528942A

PATIENT
  Weight: 4.3 kg

DRUGS (4)
  1. COMBIVIR [Suspect]
     Indication: HIV INFECTION
     Dosage: 900MG PER DAY
     Route: 048
     Dates: start: 20060915, end: 20070528
  2. COMBIVIR [Suspect]
     Dosage: 900MG PER DAY
     Route: 048
     Dates: start: 20070604
  3. TENOFOVIR [Suspect]
     Indication: HIV INFECTION
     Dosage: 300MG PER DAY
     Route: 048
     Dates: start: 20060915, end: 20070528
  4. TENOFOVIR [Suspect]
     Dosage: 300MG PER DAY
     Route: 048
     Dates: start: 20070604

REACTIONS (2)
  - CONGENITAL ANOMALY [None]
  - DRUG EXPOSURE DURING PREGNANCY [None]
